FAERS Safety Report 5895358-0 (Version None)
Quarter: 2008Q3

REPORT INFORMATION
  Report Type: 
  Country: None (occurrence: None)
  Receive Date: 20080924
  Receipt Date: 20080918
  Transmission Date: 20090109
  Serious: Yes (Congenital Anomaly)
  Sender: FDA-Public Use
  Company Number: FR-ABBOTT-08P-056-0477018-00

PATIENT
  Sex: Male
  Weight: 3 kg

DRUGS (1)
  1. DEPAKINE CHRONO TABLETS 500 MG [Suspect]
     Indication: DRUG EXPOSURE DURING PREGNANCY
     Route: 064

REACTIONS (4)
  - DRUG EXPOSURE DURING PREGNANCY [None]
  - DYSMORPHISM [None]
  - GASTROOESOPHAGEAL REFLUX DISEASE [None]
  - HYPERMOBILITY SYNDROME [None]
